FAERS Safety Report 14554102 (Version 6)
Quarter: 2018Q3

REPORT INFORMATION
  Report Type: Report from Study
  Country: US (occurrence: US)
  Receive Date: 20180220
  Receipt Date: 20180712
  Transmission Date: 20181010
  Serious: Yes (Disabling)
  Sender: FDA-Public Use
  Company Number: PHHO2016US013748

PATIENT
  Age: 48 Year
  Sex: Female
  Weight: 66.9 kg

DRUGS (6)
  1. COMPARATOR GOSERELIN [Suspect]
     Active Substance: GOSERELIN
     Indication: BREAST CANCER
     Dosage: 3.6 MG, QW4
     Route: 058
     Dates: start: 20160210, end: 20170405
  2. DEXAMETHASONE. [Suspect]
     Active Substance: DEXAMETHASONE
     Indication: RASH
     Dosage: 4 MG, QD
     Route: 048
     Dates: start: 20160629, end: 20160718
  3. KISQALI [Suspect]
     Active Substance: RIBOCICLIB
     Indication: BREAST CANCER
     Dosage: 600 MG, QD
     Route: 048
     Dates: start: 20160210, end: 20160914
  4. KISQALI [Suspect]
     Active Substance: RIBOCICLIB
     Dosage: 400 MG, QD
     Route: 048
     Dates: start: 20161116, end: 20170410
  5. PREDNISONE. [Concomitant]
     Active Substance: PREDNISONE
     Indication: ENTHESOPATHY
     Dosage: 10 MG, QD
     Route: 048
     Dates: start: 20160113, end: 20160120
  6. COMPARATOR ANASTROZOLE [Suspect]
     Active Substance: ANASTROZOLE
     Indication: BREAST CANCER
     Dosage: 1 MG, QD
     Route: 058
     Dates: start: 20160210, end: 20170410

REACTIONS (2)
  - Osteonecrosis [Recovered/Resolved with Sequelae]
  - Osteonecrosis [Recovered/Resolved with Sequelae]

NARRATIVE: CASE EVENT DATE: 20160812
